FAERS Safety Report 25868561 (Version 1)
Quarter: 2025Q4

REPORT INFORMATION
  Report Type: Spontaneous
  Country: CN (occurrence: CN)
  Receive Date: 20251001
  Receipt Date: 20251001
  Transmission Date: 20260118
  Serious: Yes (Disabling)
  Sender: ACCORD
  Company Number: None

PATIENT
  Age: 43 Year
  Sex: Female

DRUGS (3)
  1. TRASTUZUMAB [Suspect]
     Active Substance: TRASTUZUMAB
     Indication: Breast cancer
     Dosage: 420 MILLIGRAM, QD, IV DRIP, STRENGTH: 50 MG
     Route: 042
     Dates: start: 20250418, end: 20250418
  2. PACLITAXEL [Suspect]
     Active Substance: PACLITAXEL
     Indication: Breast cancer
     Dosage: 240 MILLIGRAM, QD, IV DRIP
     Route: 042
     Dates: start: 20250419, end: 20250419
  3. PYROTINIB [Suspect]
     Active Substance: PYROTINIB
     Indication: Breast cancer
     Dosage: 320 MILLIGRAM, QD
     Route: 048
     Dates: start: 20250418, end: 20250419

REACTIONS (1)
  - Myelosuppression [Recovering/Resolving]

NARRATIVE: CASE EVENT DATE: 20250422
